FAERS Safety Report 13703936 (Version 4)
Quarter: 2017Q4

REPORT INFORMATION
  Report Type: Spontaneous
  Country: JP (occurrence: JP)
  Receive Date: 20170629
  Receipt Date: 20171128
  Transmission Date: 20180320
  Serious: Yes (Hospitalization)
  Sender: FDA-Public Use
  Company Number: JP-BEH-2017081615

PATIENT
  Age: 17 Year
  Sex: Male
  Weight: 65 kg

DRUGS (6)
  1. IDELVION [Suspect]
     Active Substance: COAGULATION FACTOR IX RECOMBINANT HUMAN
     Indication: HAEMORRHAGE PROPHYLAXIS
     Dosage: 1000 IU, UNK
     Route: 042
  2. IDELVION [Suspect]
     Active Substance: COAGULATION FACTOR IX RECOMBINANT HUMAN
     Dosage: 2000 IU, UNK
     Route: 042
  3. IDELVION [Suspect]
     Active Substance: COAGULATION FACTOR IX RECOMBINANT HUMAN
     Indication: FACTOR IX DEFICIENCY
     Dosage: 3000 IU, UNK
     Route: 042
     Dates: start: 20170522, end: 20170619
  4. IDELVION [Suspect]
     Active Substance: COAGULATION FACTOR IX RECOMBINANT HUMAN
     Dosage: 3000 IU, TOT
     Route: 042
     Dates: start: 20170612, end: 20170612
  5. IDELVION [Suspect]
     Active Substance: COAGULATION FACTOR IX RECOMBINANT HUMAN
     Dosage: UNK
     Route: 065
     Dates: start: 20171102
  6. IDELVION [Suspect]
     Active Substance: COAGULATION FACTOR IX RECOMBINANT HUMAN
     Dosage: 3000 IU, TOT
     Route: 042
     Dates: start: 20170619, end: 20170619

REACTIONS (9)
  - Intermittent claudication [Recovering/Resolving]
  - Haemorrhage subcutaneous [Recovering/Resolving]
  - Peripheral swelling [Recovering/Resolving]
  - Skin swelling [Recovering/Resolving]
  - Pain in extremity [Recovering/Resolving]
  - Gait disturbance [Recovering/Resolving]
  - Muscle haemorrhage [Recovering/Resolving]
  - Muscle injury [Unknown]
  - Muscle haemorrhage [Recovering/Resolving]

NARRATIVE: CASE EVENT DATE: 20170615
